FAERS Safety Report 8510893-4 (Version None)
Quarter: 2012Q3

REPORT INFORMATION
  Report Type: 
  Country: None (occurrence: None)
  Receive Date: 20120703
  Receipt Date: 20120618
  Transmission Date: 20120928
  Serious: Yes (Other)
  Sender: FDA-Public Use
  Company Number: E2B_00000250

PATIENT
  Sex: Female
  Weight: 3 kg

DRUGS (3)
  1. FOLI ACID (GYNVITAL) [Concomitant]
  2. LEVOTHYROXINE SODIUM [Concomitant]
  3. LAMOTRIGINE [Suspect]
     Indication: EPILEPSY
     Dosage: 650 [MG/D 1/300MG-0-350MG (2 IN 1 D), TRANSPLACENTAL
     Route: 064
     Dates: start: 20110409, end: 20120113

REACTIONS (6)
  - CONGENITAL TONGUE ANOMALY [None]
  - SOMNOLENCE NEONATAL [None]
  - POOR WEIGHT GAIN NEONATAL [None]
  - MATERNAL DRUGS AFFECTING FOETUS [None]
  - EXPOSURE DURING BREAST FEEDING [None]
  - ULTRASOUND DOPPLER ABNORMAL [None]
